FAERS Safety Report 4742516-4 (Version None)
Quarter: 2005Q3

REPORT INFORMATION
  Report Type: 
  Country: None (occurrence: None)
  Receive Date: 20050808
  Receipt Date: 20050725
  Transmission Date: 20060218
  Serious: Yes (Death)
  Sender: FDA-Public Use
  Company Number: 2005-BP-12612RO

PATIENT
  Age: 17 Year
  Sex: Male
  Weight: 90.7 kg

DRUGS (1)
  1. METHADONE HCL [Suspect]
     Indication: PAIN
     Dosage: (10 MG), PO
     Route: 048

REACTIONS (7)
  - BRONCHOPNEUMONIA [None]
  - EMPHYSEMA [None]
  - FATIGUE [None]
  - HYPERHIDROSIS [None]
  - OVERDOSE [None]
  - SELF-MEDICATION [None]
  - VENTRICULAR HYPERTROPHY [None]
